FAERS Safety Report 4417713-8 (Version None)
Quarter: 2004Q3

REPORT INFORMATION
  Report Type: 
  Country: None (occurrence: None)
  Receive Date: 20040803
  Receipt Date: 20040721
  Transmission Date: 20050211
  Serious: Yes (Death)
  Sender: FDA-Public Use
  Company Number: 207481

PATIENT
  Age: 79 Year
  Sex: Male
  Weight: 72.1 kg

DRUGS (13)
  1. AVASTIN [Suspect]
     Indication: COLORECTAL CANCER METASTATIC
     Dosage: SEE IMAGE
     Route: 042
     Dates: start: 20040518, end: 20040609
  2. CAMPTOSAR [Concomitant]
  3. FLUOROURACIL [Concomitant]
  4. LEUCOVORIN CALCIUM [Concomitant]
  5. HYTRIN [Concomitant]
  6. MICRONASE [Concomitant]
  7. ACTOS [Concomitant]
  8. FLOMAX [Concomitant]
  9. IMODIUM [Concomitant]
  10. ZOLOFT [Concomitant]
  11. RESTORIL [Concomitant]
  12. MEGACE SUSPENSION  (MEGESTROL ACETATE) [Concomitant]
  13. MULTIPLE VITAMINS (MULTIVITAMINS NOS) [Concomitant]

REACTIONS (1)
  - PULMONARY EMBOLISM [None]
